FAERS Safety Report 5299712-X (Version None)
Quarter: 2007Q2

REPORT INFORMATION
  Report Type: 
  Country: None (occurrence: None)
  Receive Date: 20070410
  Receipt Date: 20070330
  Transmission Date: 20071010
  Serious: Yes (Hospitalization)
  Sender: FDA-Public Use
  Company Number: 2007AL001353

PATIENT
  Age: 49 Year
  Sex: Female

DRUGS (4)
  1. SERTRALINE HYDROCHLORIDE TABLETS, 100 MG (BASE) (AELLC) (SERTRALINE HY [Suspect]
     Dosage: X1
  2. PARACETAMOL [Concomitant]
  3. RISPERIDONE [Concomitant]
  4. CO-PROXAMOL [Concomitant]

REACTIONS (6)
  - DIALYSIS [None]
  - HEPATIC ENCEPHALOPATHY [None]
  - LABORATORY TEST ABNORMAL [None]
  - MULTIPLE DRUG OVERDOSE [None]
  - PULMONARY OEDEMA [None]
  - URINE OUTPUT DECREASED [None]
